FAERS Safety Report 5823948-X (Version None)
Quarter: 2008Q3

REPORT INFORMATION
  Report Type: 
  Country: None (occurrence: None)
  Receive Date: 20080724
  Receipt Date: 20080718
  Transmission Date: 20090109
  Serious: Yes (Other)
  Sender: FDA-Public Use
  Company Number: 87574

PATIENT
  Sex: Female

DRUGS (1)
  1. ACETAMINOPHEN 500 MG/PERRIGO COMPANY [Suspect]
     Dosage: UNKNOWN/UNKNOWN/ORAL
     Route: 048

REACTIONS (4)
  - ABDOMINAL PAIN [None]
  - HAEMATEMESIS [None]
  - HAEMATOCHEZIA [None]
  - PHARMACEUTICAL PRODUCT COMPLAINT [None]
